FAERS Safety Report 18297186 (Version 1)
Quarter: 2020Q3

REPORT INFORMATION
  Report Type: Spontaneous
  Country: FR (occurrence: FR)
  Receive Date: 20200923
  Receipt Date: 20200923
  Transmission Date: 20201103
  Serious: Yes (Hospitalization, Other)
  Sender: FDA-Public Use
  Company Number: FR-AUROBINDO-AUR-APL-2020-048781

PATIENT
  Age: 82 Year
  Sex: Female
  Weight: 64 kg

DRUGS (5)
  1. PANTOPRAZOLE [Suspect]
     Active Substance: PANTOPRAZOLE
     Indication: GASTROOESOPHAGEAL REFLUX DISEASE
     Dosage: 20 MILLIGRAM, ONCE A DAY
     Route: 048
     Dates: end: 20200703
  2. NATRIXAM [Suspect]
     Active Substance: AMLODIPINE\INDAPAMIDE
     Indication: HYPERTENSION
     Dosage: 1 DOSAGE FORM, ONCE A DAY
     Route: 048
     Dates: end: 20200703
  3. STRESAM [Concomitant]
     Active Substance: ETIFOXINE
     Indication: PRODUCT USED FOR UNKNOWN INDICATION
     Dosage: 200 MILLIGRAM, ONCE A DAY
     Route: 048
  4. COLECALCIFEROL [Concomitant]
     Active Substance: CHOLECALCIFEROL
     Indication: PRODUCT USED FOR UNKNOWN INDICATION
     Dosage: 100000 INTERNATIONAL UNIT, 3 MONTH
     Route: 048
  5. ZOPICLONE [Concomitant]
     Active Substance: ZOPICLONE
     Indication: PRODUCT USED FOR UNKNOWN INDICATION
     Dosage: 7.5 MILLIGRAM, ONCE A DAY
     Route: 048

REACTIONS (5)
  - Hypocalcaemia [Unknown]
  - Condition aggravated [Recovered/Resolved]
  - Hypokalaemia [Recovered/Resolved]
  - Hyponatraemia [Recovered/Resolved]
  - Hypochloraemia [Recovered/Resolved]

NARRATIVE: CASE EVENT DATE: 20200627
